FAERS Safety Report 9852828 (Version 1)
Quarter: 2014Q1

REPORT INFORMATION
  Report Type: Spontaneous
  Country: US (occurrence: None)
  Receive Date: 20140127
  Receipt Date: 20140127
  Transmission Date: 20141002
  Serious: No
  Sender: FDA-Public Use
  Company Number: 2014P1000356

PATIENT
  Age: 85 Year
  Sex: Male

DRUGS (10)
  1. MYORISAN 40 MG [Suspect]
     Indication: ROSACEA
     Dates: start: 20131009, end: 20140106
  2. DIGOXIN [Concomitant]
  3. DILTIAZEM [Concomitant]
  4. FUROSEMIDE [Concomitant]
  5. LISINOPRIL [Concomitant]
  6. SIMVASTATIN [Concomitant]
  7. WARFARIN [Concomitant]
  8. MORPHINE [Concomitant]
  9. HYDROCODONE [Concomitant]
  10. VITAMIN D3 [Concomitant]

REACTIONS (1)
  - Myocardial infarction [None]
